FAERS Safety Report 7792472 (Version 5)
Quarter: 2013Q4

REPORT INFORMATION
  Report Type: Spontaneous
  Country: US (occurrence: US)
  Receive Date: 20110131
  Receipt Date: 20131220
  Transmission Date: 20140711
  Serious: Yes (Hospitalization)
  Sender: FDA-Public Use
  Company Number: US-BAYER-2011-006325

PATIENT
  Age: 22 Year
  Sex: Female
  Weight: 58.96 kg

DRUGS (4)
  1. YASMIN [Suspect]
     Indication: ORAL CONTRACEPTION
     Dosage: UNK
     Route: 048
     Dates: start: 2005
  2. YASMIN [Suspect]
     Indication: ACNE
  3. OCELLA [Suspect]
     Indication: CONTRACEPTION
     Dosage: UNK
     Route: 048
     Dates: start: 2005
  4. OCELLA [Suspect]
     Indication: ACNE

REACTIONS (5)
  - Cholecystitis [None]
  - Bile duct stone [None]
  - Pain [None]
  - Emotional distress [None]
  - Abdominal pain upper [None]
